FAERS Safety Report 11160069 (Version 2)
Quarter: 2015Q3

REPORT INFORMATION
  Report Type: Spontaneous
  Country: JP (occurrence: JP)
  Receive Date: 20150603
  Receipt Date: 20150720
  Transmission Date: 20151125
  Serious: Yes (Hospitalization)
  Sender: FDA-Public Use
  Company Number: JP-009507513-1504JPN018277

PATIENT
  Age: 69 Year
  Sex: Male
  Weight: 61 kg

DRUGS (2)
  1. ZETIA [Suspect]
     Active Substance: EZETIMIBE
     Indication: HYPERLIPIDAEMIA
     Dosage: 10 MG, ONCE A DAY
     Route: 048
     Dates: start: 20130227, end: 20140506
  2. BEZAFIBRATE [Suspect]
     Active Substance: BEZAFIBRATE
     Indication: HYPERLIPIDAEMIA
     Dosage: 200 MG, TWICE A DAY
     Route: 048
     Dates: start: 20121024, end: 20140506

REACTIONS (1)
  - Stevens-Johnson syndrome [Recovered/Resolved]

NARRATIVE: CASE EVENT DATE: 20140507
